FAERS Safety Report 20880492 (Version 2)
Quarter: 2022Q2

REPORT INFORMATION
  Report Type: Spontaneous
  Country: US (occurrence: US)
  Receive Date: 20220526
  Receipt Date: 20220531
  Transmission Date: 20220721
  Serious: Yes (Other)
  Sender: FDA-Public Use
  Company Number: US-ALLERGAN-2217175US

PATIENT
  Sex: Male
  Weight: 88.435 kg

DRUGS (19)
  1. BOTOX [Suspect]
     Active Substance: ONABOTULINUMTOXINA
     Indication: Limb deformity
     Dosage: UNK UNK, SINGLE
     Dates: start: 2006, end: 2006
  2. BOTOX [Suspect]
     Active Substance: ONABOTULINUMTOXINA
     Dosage: 200 UNITS, SINGLE
     Dates: start: 202111, end: 202111
  3. BOTOX [Suspect]
     Active Substance: ONABOTULINUMTOXINA
     Dosage: 200 UNITS, SINGLE
  4. ELIQUIS [Concomitant]
     Active Substance: APIXABAN
     Indication: Pulmonary embolism
  5. FENTANYL [Concomitant]
     Active Substance: FENTANYL
     Indication: Pain in extremity
     Dosage: 100 ?G EVERY 2 DAYS
     Route: 061
  6. FENTANYL [Concomitant]
     Active Substance: FENTANYL
     Indication: Muscle atrophy
  7. ROXICODONE [Concomitant]
     Active Substance: OXYCODONE HYDROCHLORIDE
     Indication: Pain in extremity
     Dosage: 30 MG, Q3HR
     Route: 048
  8. ROXICODONE [Concomitant]
     Active Substance: OXYCODONE HYDROCHLORIDE
     Indication: Muscle atrophy
  9. CELEXA [Concomitant]
     Active Substance: CITALOPRAM HYDROBROMIDE
     Indication: Depression
     Dosage: 20 MG 1 DF AND A HALF DAILY
     Route: 048
     Dates: start: 202201
  10. IRON [FERROUS SULFATE] [Concomitant]
     Indication: Anaemia
     Dosage: 325 MG, QD
     Route: 048
     Dates: start: 2019
  11. LEVOTHYROXINE [Concomitant]
     Active Substance: LEVOTHYROXINE
     Indication: Hypothyroidism
     Dosage: 100 ?G, QD
     Route: 048
  12. SPIRIVA [Concomitant]
     Active Substance: TIOTROPIUM BROMIDE MONOHYDRATE
     Indication: Asthma
     Dosage: UNK, QD
     Dates: start: 2018
  13. BREO ELLIPTA [Concomitant]
     Active Substance: FLUTICASONE FUROATE\VILANTEROL TRIFENATATE
     Indication: Asthma
     Dosage: UNK, QD
     Dates: start: 2018
  14. MONTELUKAST SODIUM [Concomitant]
     Active Substance: MONTELUKAST SODIUM
     Indication: Hypersensitivity
     Dosage: 10 MG, QD
     Route: 048
     Dates: start: 2018
  15. PANTOPRAZOLE [Concomitant]
     Active Substance: PANTOPRAZOLE
     Indication: Gastrooesophageal reflux disease
     Dosage: 40 MG
     Route: 048
     Dates: start: 2018
  16. MINERALS\VITAMINS [Concomitant]
     Active Substance: MINERALS\VITAMINS
     Dosage: UNK, QD
  17. FISH OIL [Concomitant]
     Active Substance: FISH OIL
     Indication: Arthropathy
     Dosage: 2000 MG, BID
     Route: 048
  18. B COMPLEX [AMINOBENZOIC ACID;BIOTIN;CHOLINE BITARTRATE;FOLIC ACID;INOS [Concomitant]
     Indication: Asthenia
     Dosage: UNK, QD
  19. B COMPLEX [AMINOBENZOIC ACID;BIOTIN;CHOLINE BITARTRATE;FOLIC ACID;INOS [Concomitant]
     Indication: Digestive enzyme abnormal

REACTIONS (14)
  - Muscle disorder [Unknown]
  - Adverse event [Unknown]
  - Limb deformity [Not Recovered/Not Resolved]
  - Paralysis [Not Recovered/Not Resolved]
  - Off label use [Unknown]
  - Hypothyroidism [Not Recovered/Not Resolved]
  - Fall [Recovered/Resolved]
  - Impaired quality of life [Not Recovered/Not Resolved]
  - Spinal fusion surgery [Unknown]
  - Muscle atrophy [Not Recovered/Not Resolved]
  - Gait disturbance [Not Recovered/Not Resolved]
  - Muscular weakness [Not Recovered/Not Resolved]
  - Therapeutic response decreased [Unknown]
  - Asthenia [Not Recovered/Not Resolved]

NARRATIVE: CASE EVENT DATE: 20150101
